FAERS Safety Report 25142296 (Version 1)
Quarter: 2025Q1

REPORT INFORMATION
  Report Type: Spontaneous
  Country: BE (occurrence: BE)
  Receive Date: 20250331
  Receipt Date: 20250331
  Transmission Date: 20250408
  Serious: Yes (Other)
  Sender: B BRAUN
  Company Number: BE-B.Braun Medical Inc.-2173975

PATIENT
  Sex: Female
  Weight: 90 kg

DRUGS (1)
  1. ACETAMINOPHEN [Suspect]
     Active Substance: ACETAMINOPHEN

REACTIONS (3)
  - Nausea [Not Recovered/Not Resolved]
  - Overdose [Not Recovered/Not Resolved]
  - Abdominal pain [Not Recovered/Not Resolved]
